FAERS Safety Report 6700092-0 (Version None)
Quarter: 2010Q2

REPORT INFORMATION
  Report Type: 
  Country: None (occurrence: None)
  Receive Date: 20100427
  Receipt Date: 20100427
  Transmission Date: 20101027
  Serious: Yes (Other)
  Sender: FDA-Public Use
  Company Number: None

PATIENT
  Sex: Female
  Weight: 61.2356 kg

DRUGS (1)
  1. ACCUTANE [Suspect]
     Indication: ACNE
     Dosage: DAILY PO
     Route: 048
     Dates: start: 19960101

REACTIONS (7)
  - AMNESIA [None]
  - ARTHRALGIA [None]
  - BACK PAIN [None]
  - DRY EYE [None]
  - HEPATIC FUNCTION ABNORMAL [None]
  - OSTEOARTHRITIS [None]
  - SPINAL OSTEOARTHRITIS [None]
